FAERS Safety Report 10735112 (Version 1)
Quarter: 2015Q1

REPORT INFORMATION
  Report Type: Spontaneous
  Country: US (occurrence: US)
  Receive Date: 20150124
  Receipt Date: 20150124
  Transmission Date: 20150721
  Serious: Yes (Death)
  Sender: FDA-Public Use
  Company Number: US-009507513-1501USA007581

PATIENT
  Age: 28 Year
  Sex: Female

DRUGS (9)
  1. SERTRALINE HYDROCHLORIDE. [Suspect]
     Active Substance: SERTRALINE HYDROCHLORIDE
     Dosage: UNK
     Route: 055
  2. CARBON MONOXIDE [Suspect]
     Active Substance: CARBON MONOXIDE
     Route: 055
  3. SERTRALINE HYDROCHLORIDE. [Suspect]
     Active Substance: SERTRALINE HYDROCHLORIDE
     Route: 055
  4. SOLARCAINE COOL ALOE [Suspect]
     Active Substance: LIDOCAINE HYDROCHLORIDE
     Route: 055
  5. METOPROLOL [Suspect]
     Active Substance: METOPROLOL
     Route: 055
  6. ELAVIL [Suspect]
     Active Substance: AMITRIPTYLINE HYDROCHLORIDE
     Route: 048
  7. CAFFEINE. [Suspect]
     Active Substance: CAFFEINE
     Route: 055
  8. CAFFEINE. [Suspect]
     Active Substance: CAFFEINE
     Dosage: UNK
     Route: 055
  9. SERTRALINE HYDROCHLORIDE. [Suspect]
     Active Substance: SERTRALINE HYDROCHLORIDE
     Dosage: UNK
     Route: 055

REACTIONS (2)
  - Environmental exposure [Fatal]
  - Toxicity to various agents [Fatal]
